FAERS Safety Report 9682615 (Version 2)
Quarter: 2013Q4

REPORT INFORMATION
  Report Type: Spontaneous
  Country: IT (occurrence: IT)
  Receive Date: 20131112
  Receipt Date: 20131112
  Transmission Date: 20140711
  Serious: Yes (Other)
  Sender: FDA-Public Use
  Company Number: IT-009507513-1308ITA004599

PATIENT
  Age: 58 Year
  Sex: Male

DRUGS (1)
  1. LOSAZID 100MG + 25MG COMPRESSE RIVESTITE CON FILM [Suspect]
     Indication: HYPERTENSION
     Dosage: 50MG+12.5MG(HALF UNIT) DAILY
     Route: 048
     Dates: start: 2000

REACTIONS (1)
  - Renal colic [Unknown]
